FAERS Safety Report 14255945 (Version 2)
Quarter: 2017Q4

REPORT INFORMATION
  Report Type: Report from Study
  Country: None (occurrence: US)
  Receive Date: 20171206
  Receipt Date: 20171215
  Transmission Date: 20180321
  Serious: Yes (Hospitalization, Other)
  Sender: FDA-Public Use
  Company Number: US-ABBVIE-17K-163-2170996-00

PATIENT
  Age: 71 Year
  Sex: Female
  Weight: 72.64 kg

DRUGS (6)
  1. HUMIRA [Suspect]
     Active Substance: ADALIMUMAB
     Indication: PSORIATIC ARTHROPATHY
     Dosage: DISCONTINUED FOR RENAL SURGERY FOR 4 WEEKS
     Route: 058
     Dates: start: 2009, end: 2017
  2. HUMIRA [Suspect]
     Active Substance: ADALIMUMAB
     Indication: PSORIASIS
     Dosage: DISCONTINUED FOR BARIATIC SURGERY FOR 6 WEEKS.
     Route: 058
     Dates: start: 2017, end: 2017
  3. EXFORGE [Concomitant]
     Active Substance: AMLODIPINE BESYLATE\VALSARTAN
     Indication: PRODUCT USED FOR UNKNOWN INDICATION
  4. HUMIRA [Suspect]
     Active Substance: ADALIMUMAB
     Route: 058
     Dates: start: 201711
  5. PRAVASTATIN. [Concomitant]
     Active Substance: PRAVASTATIN
     Indication: PRODUCT USED FOR UNKNOWN INDICATION
  6. LYRICA [Concomitant]
     Active Substance: PREGABALIN
     Indication: PRODUCT USED FOR UNKNOWN INDICATION

REACTIONS (6)
  - Impaired gastric emptying [Recovered/Resolved]
  - Scar [Not Recovered/Not Resolved]
  - Renal cancer stage I [Recovered/Resolved]
  - Hernia [Recovered/Resolved]
  - Procedural pain [Recovered/Resolved]
  - Incision site complication [Not Recovered/Not Resolved]

NARRATIVE: CASE EVENT DATE: 2017
